FAERS Safety Report 11133504 (Version 1)
Quarter: 2015Q2

REPORT INFORMATION
  Report Type: Spontaneous
  Country: IT (occurrence: IT)
  Receive Date: 20150522
  Receipt Date: 20150522
  Transmission Date: 20150821
  Serious: Yes (Other)
  Sender: FDA-Public Use
  Company Number: PHHY2015IT056241

PATIENT
  Age: 33 Year
  Sex: Male

DRUGS (3)
  1. CLOZAPINE. [Suspect]
     Active Substance: CLOZAPINE
     Indication: SCHIZOPHRENIA
     Dosage: 500 MG, UNK
     Route: 048
  2. CLOZAPINE. [Suspect]
     Active Substance: CLOZAPINE
     Dosage: DOSE CHANGED (DOSE UNSCPECIFIED)
     Route: 048
  3. BUPROPIONE [Suspect]
     Active Substance: BUPROPION HYDROCHLORIDE
     Indication: SCHIZOPHRENIA
     Dosage: 150 MG, QD
     Route: 065

REACTIONS (6)
  - Hallucination [Not Recovered/Not Resolved]
  - Tachycardia [Not Recovered/Not Resolved]
  - Sedation [Not Recovered/Not Resolved]
  - Hypotension [Not Recovered/Not Resolved]
  - Seizure [Not Recovered/Not Resolved]
  - Salivary hypersecretion [Not Recovered/Not Resolved]
